FAERS Safety Report 22162939 (Version 1)
Quarter: 2023Q2

REPORT INFORMATION
  Report Type: Other
  Country: None (occurrence: IT)
  Receive Date: 20230401
  Receipt Date: 20230401
  Transmission Date: 20230721
  Serious: Yes (Hospitalization)
  Sender: FDA-Public Use
  Company Number: IT-Innogenix, LLC-2139791

PATIENT
  Age: 23 Year
  Sex: Male

DRUGS (4)
  1. HALOPERIDOL [Suspect]
     Active Substance: HALOPERIDOL
     Indication: Psychotic disorder
     Route: 065
  2. VALPROIC ACID [Concomitant]
     Active Substance: VALPROIC ACID
     Route: 065
  3. DELORAZEPAM [Concomitant]
     Active Substance: DELORAZEPAM
     Route: 065
  4. CHLORPROMAZINE [Concomitant]
     Active Substance: CHLORPROMAZINE
     Route: 065

REACTIONS (2)
  - Psychomotor hyperactivity [Recovered/Resolved]
  - Akathisia [Recovered/Resolved]
